FAERS Safety Report 12702736 (Version 2)
Quarter: 2016Q3

REPORT INFORMATION
  Report Type: Spontaneous
  Country: US (occurrence: US)
  Receive Date: 20160831
  Receipt Date: 20160914
  Transmission Date: 20161109
  Serious: No
  Sender: FDA-Public Use
  Company Number: US-BAYER-2016-166540

PATIENT
  Age: 76 Year
  Sex: Male
  Weight: 84.81 kg

DRUGS (1)
  1. ALEVE PM [Suspect]
     Active Substance: DIPHENHYDRAMINE HYDROCHLORIDE\NAPROXEN SODIUM
     Indication: PAIN
     Dosage: UNK
     Dates: start: 20160820, end: 20160825

REACTIONS (5)
  - Product use issue [None]
  - Wrong technique in product usage process [None]
  - Product use issue [Recovered/Resolved]
  - Product use issue [None]
  - Product use issue [None]

NARRATIVE: CASE EVENT DATE: 20160820
